FAERS Safety Report 16431578 (Version 1)
Quarter: 2019Q2

REPORT INFORMATION
  Report Type: Spontaneous
  Country: JP (occurrence: JP)
  Receive Date: 20190614
  Receipt Date: 20190614
  Transmission Date: 20190711
  Serious: Yes (Other)
  Sender: FDA-Public Use
  Company Number: JP-009507513-1905JPN001215J

PATIENT
  Age: 83 Year
  Sex: Male

DRUGS (8)
  1. CUBICIN [Suspect]
     Active Substance: DAPTOMYCIN
     Dosage: 300 MILLIGRAM, QD
     Route: 041
     Dates: start: 20190423, end: 20190509
  2. CEFAMEZIN (CEFAZOLIN SODIUM) [Concomitant]
     Active Substance: CEFAZOLIN SODIUM
     Indication: POST PROCEDURAL INFECTION
     Dosage: UNK
     Route: 065
     Dates: start: 20190319, end: 20190327
  3. CUBICIN [Suspect]
     Active Substance: DAPTOMYCIN
     Indication: POST PROCEDURAL INFECTION
     Dosage: 300 MILLIGRAM, QD
     Route: 041
     Dates: start: 20190319, end: 201903
  4. TRAMCET [Concomitant]
     Active Substance: ACETAMINOPHEN\TRAMADOL
     Dosage: UNK
     Route: 065
  5. CUBICIN [Suspect]
     Active Substance: DAPTOMYCIN
     Indication: PROPIONIBACTERIUM INFECTION
     Dosage: 300 MILLIGRAM, QD
     Route: 041
     Dates: start: 20190405, end: 201904
  6. LYRICA [Concomitant]
     Active Substance: PREGABALIN
     Dosage: UNK
     Route: 065
  7. COMPLAVIN [Concomitant]
     Active Substance: ASPIRIN\CLOPIDOGREL BISULFATE
     Dosage: UNK
     Route: 065
  8. VANCOMYCIN [Concomitant]
     Active Substance: VANCOMYCIN
     Dosage: UNK
     Route: 065
     Dates: start: 20190328, end: 20190404

REACTIONS (4)
  - Interstitial lung disease [Recovered/Resolved]
  - C-reactive protein increased [Unknown]
  - Off label use [Unknown]
  - Pain in extremity [Unknown]

NARRATIVE: CASE EVENT DATE: 2019
